FAERS Safety Report 14046152 (Version 2)
Quarter: 2017Q4

REPORT INFORMATION
  Report Type: Report from Study
  Country: US (occurrence: US)
  Receive Date: 20171005
  Receipt Date: 20171016
  Transmission Date: 20180321
  Serious: Yes (Other)
  Sender: FDA-Public Use
  Company Number: US-JNJFOC-20170908398

PATIENT
  Sex: Male

DRUGS (16)
  1. LISINOPRIL. [Concomitant]
     Active Substance: LISINOPRIL
  2. VITAMIN D [Concomitant]
     Active Substance: CHOLECALCIFEROL
  3. CALCITRIOL. [Concomitant]
     Active Substance: CALCITRIOL
  4. BACTRIM DS [Concomitant]
     Active Substance: SULFAMETHOXAZOLE\TRIMETHOPRIM
  5. POTASSIUM [Concomitant]
     Active Substance: POTASSIUM
  6. IMBRUVICA [Suspect]
     Active Substance: IBRUTINIB
     Indication: CHRONIC LYMPHOCYTIC LEUKAEMIA
     Route: 048
     Dates: start: 20161103
  7. TOPROL XL [Concomitant]
     Active Substance: METOPROLOL SUCCINATE
  8. FISH OIL [Concomitant]
     Active Substance: FISH OIL
  9. VALIUM [Concomitant]
     Active Substance: DIAZEPAM
  10. TORSEMIDE. [Concomitant]
     Active Substance: TORSEMIDE
  11. BELSOMRA [Concomitant]
     Active Substance: SUVOREXANT
  12. LOSARTAN. [Concomitant]
     Active Substance: LOSARTAN
  13. ACYCLOVIR. [Concomitant]
     Active Substance: ACYCLOVIR
  14. SIMVASTATIN. [Concomitant]
     Active Substance: SIMVASTATIN
  15. NIFEDIPINE. [Concomitant]
     Active Substance: NIFEDIPINE
  16. NORTRIPTYLINE [Concomitant]
     Active Substance: NORTRIPTYLINE

REACTIONS (2)
  - Depression [Recovering/Resolving]
  - Suicidal ideation [Recovering/Resolving]
